FAERS Safety Report 23039958 (Version 1)
Quarter: 2023Q4

REPORT INFORMATION
  Report Type: Spontaneous
  Country: US (occurrence: US)
  Receive Date: 20231006
  Receipt Date: 20231006
  Transmission Date: 20240109
  Serious: Yes (Hospitalization, Other)
  Sender: FDA-Public Use
  Company Number: US-TEVA-2023-US-2933400

PATIENT
  Sex: Female

DRUGS (1)
  1. NUVIGIL [Suspect]
     Active Substance: ARMODAFINIL
     Indication: Sleep disorder
     Dosage: 1 DOSAGE FORMS DAILY;
     Dates: start: 2023, end: 2023

REACTIONS (8)
  - Hallucination [Unknown]
  - Intentional self-injury [Unknown]
  - Injury [Unknown]
  - Pneumonia [Unknown]
  - Mental disorder [Unknown]
  - Agitation [Unknown]
  - Liver disorder [Unknown]
  - Amnesia [Unknown]

NARRATIVE: CASE EVENT DATE: 20230101
